FAERS Safety Report 18782896 (Version 1)
Quarter: 2021Q1

REPORT INFORMATION
  Report Type: Report from Study
  Country: US (occurrence: US)
  Receive Date: 20210125
  Receipt Date: 20210125
  Transmission Date: 20210419
  Serious: Yes (Hospitalization, Other)
  Sender: FDA-Public Use
  Company Number: US-REGENERON PHARMACEUTICALS, INC.-2021-13689

PATIENT

DRUGS (1)
  1. CASIRIVIMAB AND IMDEVIMAB [Suspect]
     Active Substance: CASIRIVIMAB\IMDEVIMAB
     Indication: COVID-19
     Dosage: 2400 MG, ONCE IV
     Route: 042
     Dates: start: 20210104, end: 20210104

REACTIONS (9)
  - Oxygen saturation decreased [Unknown]
  - Atrial flutter [Unknown]
  - Pharyngeal swelling [Recovering/Resolving]
  - Anaphylactic reaction [Unknown]
  - Swollen tongue [Recovering/Resolving]
  - Tremor [Unknown]
  - Sinus node dysfunction [Unknown]
  - Dysarthria [Unknown]
  - Confusional state [Unknown]

NARRATIVE: CASE EVENT DATE: 20210104
